FAERS Safety Report 14352318 (Version 4)
Quarter: 2023Q4

REPORT INFORMATION
  Report Type: Spontaneous
  Country: CA (occurrence: CA)
  Receive Date: 20180104
  Receipt Date: 20231206
  Transmission Date: 20240110
  Serious: Yes (Other)
  Sender: FDA-Public Use
  Company Number: CA-PFIZER INC-2017554752

PATIENT
  Sex: Female

DRUGS (1)
  1. VARENICLINE TARTRATE [Suspect]
     Active Substance: VARENICLINE TARTRATE
     Indication: Smoking cessation therapy
     Dosage: UNK
     Dates: start: 2009

REACTIONS (9)
  - Suicidal ideation [Not Recovered/Not Resolved]
  - Delusional disorder, persecutory type [Not Recovered/Not Resolved]
  - Homicidal ideation [Unknown]
  - Agitation [Unknown]
  - Anger [Unknown]
  - Hostility [Unknown]
  - Depressed mood [Unknown]
  - Irritability [Unknown]
  - Stress [Unknown]
